FAERS Safety Report 5248089-4 (Version None)
Quarter: 2007Q1

REPORT INFORMATION
  Report Type: 
  Country: None (occurrence: None)
  Receive Date: 20070227
  Receipt Date: 20070226
  Transmission Date: 20070707
  Serious: Yes (Life-Threatening, Hospitalization, Other)
  Sender: FDA-Public Use
  Company Number: US-GLAXOSMITHKLINE-A0640590A

PATIENT
  Sex: Male

DRUGS (3)
  1. COMBIVIR [Suspect]
     Indication: HIV INFECTION
     Route: 048
  2. VIRAMUNE [Concomitant]
  3. VALCYTE [Concomitant]

REACTIONS (5)
  - BLINDNESS [None]
  - CYTOMEGALOVIRUS CHORIORETINITIS [None]
  - CYTOMEGALOVIRUS INFECTION [None]
  - HAEMOLYTIC ANAEMIA [None]
  - PHARMACEUTICAL PRODUCT COMPLAINT [None]
